FAERS Safety Report 16841392 (Version 1)
Quarter: 2019Q3

REPORT INFORMATION
  Report Type: Report from Study
  Country: US (occurrence: US)
  Receive Date: 20190923
  Receipt Date: 20190923
  Transmission Date: 20191005
  Serious: Yes (Hospitalization)
  Sender: FDA-Public Use
  Company Number: US-GLAXOSMITHKLINE-2019-TSO03087-US

PATIENT
  Age: 69 Year
  Sex: Female
  Weight: 45.76 kg

DRUGS (11)
  1. BLINDED PLACEBO [Suspect]
     Active Substance: INVESTIGATIONAL PRODUCT
     Dosage: 200 MG, UNK
     Route: 048
     Dates: start: 20190816, end: 20190828
  2. NYSTATIN. [Concomitant]
     Active Substance: NYSTATIN
     Indication: MUCOSAL INFLAMMATION
     Dosage: 5 ML, QID
     Route: 048
     Dates: start: 20190827
  3. CARBOPLATIN. [Suspect]
     Active Substance: CARBOPLATIN
     Dosage: 5 AUC
     Dates: start: 20190308, end: 20190308
  4. PACLITAXEL. [Suspect]
     Active Substance: PACLITAXEL
     Dosage: 181 MG, UNK
     Dates: start: 20190726, end: 20190726
  5. BLINDED PLACEBO [Suspect]
     Active Substance: INVESTIGATIONAL PRODUCT
     Dosage: 200 MG, UNK
     Route: 048
     Dates: start: 20190816, end: 20190828
  6. SUCRALFATE. [Concomitant]
     Active Substance: SUCRALFATE
     Indication: MUCOSAL INFLAMMATION
     Dosage: 1 TABLET, QID
     Route: 048
     Dates: start: 20190827
  7. BLINDED NIRAPARIB [Suspect]
     Active Substance: NIRAPARIB
     Dosage: 200 MG, UNK
     Route: 048
     Dates: start: 20190816, end: 20190828
  8. CARBOPLATIN. [Suspect]
     Active Substance: CARBOPLATIN
     Dosage: 356 AUC
     Dates: start: 20190826
  9. BEVACIZUMAB. [Suspect]
     Active Substance: BEVACIZUMAB
     Dosage: 564 MG/KG, UNK
     Dates: start: 20190816, end: 20190816
  10. PACLITAXEL. [Suspect]
     Active Substance: PACLITAXEL
     Dosage: 252 MG, UNK
     Dates: start: 20190308, end: 20190308
  11. BLINDED DOSTARLIMAB [Suspect]
     Active Substance: DOSTARLIMAB
     Dosage: 200 MG, UNK
     Route: 048
     Dates: start: 20190816, end: 20190828

REACTIONS (1)
  - Mucosal inflammation [Recovering/Resolving]

NARRATIVE: CASE EVENT DATE: 20190901
